FAERS Safety Report 10272355 (Version 1)
Quarter: 2014Q2

REPORT INFORMATION
  Report Type: Spontaneous
  Country: US (occurrence: None)
  Receive Date: 20140627
  Receipt Date: 20140627
  Transmission Date: 20141212
  Serious: Yes (Hospitalization)
  Sender: FDA-Public Use
  Company Number: HYP201406-000035

PATIENT
  Age: 10 Month
  Sex: Female

DRUGS (3)
  1. RAVICTI (GLYCEROL PHENYLBUTYRATE) ORAL LIQUID [Suspect]
     Indication: AMINO ACID METABOLISM DISORDER
     Dates: start: 201312, end: 20140605
  2. CITRULLINE (CITRULLINE) [Concomitant]
  3. RANITIDINE HCL (RANITIDINE HYDROCHLORIDE) [Concomitant]

REACTIONS (4)
  - Gastrointestinal disorder [None]
  - Hyperammonaemic crisis [None]
  - Vomiting [None]
  - Off label use [None]
